FAERS Safety Report 17851814 (Version 1)
Quarter: 2020Q2

REPORT INFORMATION
  Report Type: Report from Study
  Country: IN (occurrence: IN)
  Receive Date: 20200602
  Receipt Date: 20200602
  Transmission Date: 20200714
  Serious: Yes (Death)
  Sender: FDA-Public Use
  Company Number: IN-MYLANLABS-2020M1022782

PATIENT
  Age: 53 Year
  Sex: Female
  Weight: 65 kg

DRUGS (4)
  1. HERLAPSA [Suspect]
     Active Substance: LAPATINIB
     Indication: BREAST CANCER
     Dosage: 250 MILLIGRAM, BID
     Route: 048
     Dates: start: 20200114
  2. PRO-5 [Suspect]
     Active Substance: CAPECITABINE
     Indication: BREAST CANCER
     Dosage: 500 MILLIGRAM, BID (6 TABS)
     Route: 048
     Dates: start: 20200118
  3. HERLAPSA [Suspect]
     Active Substance: LAPATINIB
     Indication: BREAST CANCER METASTATIC
     Dosage: 250 MILLIGRAM, BID (4TAB)
     Route: 048
     Dates: start: 20200118
  4. THYRONORM [Concomitant]
     Active Substance: LEVOTHYROXINE
     Indication: THYROID DISORDER
     Dosage: 50 MICROGRAM
     Route: 048
     Dates: start: 201912

REACTIONS (5)
  - Peripheral swelling [Not Recovered/Not Resolved]
  - Gait inability [Not Recovered/Not Resolved]
  - Death [Fatal]
  - Malaise [Not Recovered/Not Resolved]
  - Vulvovaginal burning sensation [Not Recovered/Not Resolved]

NARRATIVE: CASE EVENT DATE: 20200118
